FAERS Safety Report 4310240-8 (Version None)
Quarter: 2004Q1

REPORT INFORMATION
  Report Type: 
  Country: None (occurrence: None)
  Receive Date: 20040301
  Receipt Date: 20031218
  Transmission Date: 20041129
  Serious: No
  Sender: FDA-Public Use
  Company Number: WAES 0312USA02238

PATIENT

DRUGS (3)
  1. ZETIA [Suspect]
     Dosage: PO
  2. POLICOSANOL [Concomitant]
  3. MULTIVITAMIN [Concomitant]

REACTIONS (2)
  - BLOOD CREATININE INCREASED [None]
  - RENAL FAILURE [None]
